FAERS Safety Report 25248675 (Version 1)
Quarter: 2025Q2

REPORT INFORMATION
  Report Type: Spontaneous
  Country: US (occurrence: US)
  Receive Date: 20250429
  Receipt Date: 20250429
  Transmission Date: 20250716
  Serious: No
  Sender: ABBVIE
  Company Number: US-ABBVIE-6255284

PATIENT
  Age: 34 Year
  Sex: Female

DRUGS (1)
  1. UPADACITINIB [Suspect]
     Active Substance: UPADACITINIB
     Indication: Hidradenitis
     Route: 048
     Dates: start: 20231204, end: 20241201

REACTIONS (1)
  - Therapeutic product effect decreased [Unknown]
